FAERS Safety Report 7584342-7 (Version None)
Quarter: 2011Q2

REPORT INFORMATION
  Report Type: 
  Country: None (occurrence: None)
  Receive Date: 20110630
  Receipt Date: 20110629
  Transmission Date: 20111010
  Serious: Yes (Other)
  Sender: FDA-Public Use
  Company Number: US-UCBSA-033929

PATIENT
  Sex: Female
  Weight: 65.77 kg

DRUGS (28)
  1. ZONEGRAN [Concomitant]
     Indication: MIGRAINE
     Dosage: 3-4 CAPSULES AT BEDTIMES
     Route: 048
     Dates: start: 20060201
  2. MELATONIN [Concomitant]
     Indication: INSOMNIA
     Route: 048
     Dates: start: 20110301
  3. NEXIUM [Concomitant]
     Indication: GASTROOESOPHAGEAL REFLUX DISEASE
     Route: 048
     Dates: start: 20060201
  4. VERAMYST [Concomitant]
     Indication: ASTHMA
     Dosage: 2 SQUARTS IN NOSTRIL DAILY
     Route: 045
     Dates: start: 20090601
  5. VITAMIN B-12 [Concomitant]
     Indication: MIGRAINE
     Route: 048
     Dates: start: 20090901
  6. COLACE [Concomitant]
     Indication: CONSTIPATION
     Dosage: ONE TID
     Route: 048
     Dates: start: 20080901
  7. KLONOPIN [Concomitant]
     Indication: ANXIETY
     Dosage: AT BEDTIME BUT CAN TAKE 1/2 MORE DURING THE DAY
     Route: 048
     Dates: start: 20060401
  8. KLONOPIN [Concomitant]
     Indication: PANIC ATTACK
     Dosage: AT BEDTIME BUT CAN TAKE 1/2 MORE DURING THE DAY
     Route: 048
     Dates: start: 20060401
  9. VITAMIN D [Concomitant]
     Indication: MENOPAUSE
     Dosage: DOSE PER INTAKE: 2000 UNITS
     Route: 048
     Dates: start: 20080801
  10. APEXICON [Concomitant]
     Indication: ECZEMA
     Dosage: BID; SKIN OINTMENT
     Dates: start: 20070101
  11. WELLBUTRIN SR [Concomitant]
     Indication: DEPRESSION
     Route: 048
     Dates: start: 20061001
  12. WELLBUTRIN SR [Concomitant]
     Indication: OBSESSIVE-COMPULSIVE DISORDER
     Route: 048
     Dates: start: 20061001
  13. SODIUM CHLORIDE 5% [Concomitant]
     Indication: CORNEAL DYSTROPHY
     Dosage: 128.5%;DOSE PER INTAKE; 1 DROP; BEDTIME; BOTH EYES
     Dates: start: 20050401
  14. CRYSTALLINE VIT B12 INJ [Concomitant]
     Indication: CROHN'S DISEASE
     Dosage: DOSE PER INTAKE: ONE SHOT
     Route: 058
     Dates: start: 19980101
  15. BONIVA [Concomitant]
     Indication: OSTEOPENIA
     Dosage: DOSE PER INTAKE: 3MG/ML
     Dates: start: 20090901
  16. EFFEXOR [Concomitant]
     Indication: DEPRESSION
     Route: 048
     Dates: start: 20090701
  17. SEROQUEL [Concomitant]
     Indication: MIGRAINE
     Dosage: DOSE PER INTAKE :25MG; FREQ: ONE TO FOUR TABS EVERY 4 HOURS
     Route: 048
     Dates: start: 20060201
  18. RELPAX [Concomitant]
     Indication: MIGRAINE
     Dosage: DOSE PER INTAKE: 40MG; FREQ: ONE TAB AND IF NEED ONE MORE IN TWO HOURS
     Route: 048
     Dates: start: 20060401
  19. MAGNESIUM OXIDE [Concomitant]
     Indication: MIGRAINE
     Route: 048
     Dates: start: 20060401
  20. ANUSOL [Concomitant]
     Indication: HAEMORRHOIDS
     Dosage: START: YEARS;ROUTE: RECTUM SKIN
  21. CIMZIA [Suspect]
     Indication: CROHN'S DISEASE
     Route: 058
     Dates: start: 20110101
  22. FOLIC ACID [Concomitant]
     Indication: CROHN'S DISEASE
     Route: 048
     Dates: start: 20030601
  23. QVAR 40 [Concomitant]
     Indication: ASTHMA
     Dosage: ROUTE: INHALER; DOSE PER INTAKE : 80 MG; 2 PUFFS BID
     Dates: start: 20100101
  24. EFFEXOR [Concomitant]
     Indication: OBSESSIVE-COMPULSIVE DISORDER
     Route: 048
     Dates: start: 20090701
  25. MURO [Concomitant]
     Indication: CORNEAL DYSTROPHY
     Dosage: 128.5%; 1 DROP; BOTH EYES
     Route: 047
     Dates: start: 20050401
  26. REFRESH LIQUID GEL [Concomitant]
     Indication: CORNEAL DYSTROPHY
     Dosage: 1%; DOSE PER INTAKE: 1 DROP; BOTH EYES
     Dates: start: 20050401
  27. CALCIUM CITRATE [Concomitant]
     Indication: OSTEOPENIA
     Dosage: DOSE PER INTAKE: 315/200 UNIT ; 2 TABLETS BID
     Route: 048
     Dates: start: 20060201
  28. COMPAZINE [Concomitant]
     Indication: MIGRAINE
     Route: 048
     Dates: start: 20040901

REACTIONS (5)
  - INFLUENZA [None]
  - VIOLENCE-RELATED SYMPTOM [None]
  - NASOPHARYNGITIS [None]
  - SUICIDAL IDEATION [None]
  - MOOD ALTERED [None]
